FAERS Safety Report 24582579 (Version 1)
Quarter: 2024Q4

REPORT INFORMATION
  Report Type: Report from Study
  Country: US (occurrence: US)
  Receive Date: 20241106
  Receipt Date: 20241106
  Transmission Date: 20250114
  Serious: Yes (Hospitalization)
  Sender: AMNEAL
  Company Number: US-AMNEAL PHARMACEUTICALS-2024-AMRX-03959

PATIENT
  Age: 18 Year
  Sex: Male

DRUGS (1)
  1. FYLNETRA [Suspect]
     Active Substance: PEGFILGRASTIM-PBBK
     Indication: Product used for unknown indication
     Dosage: 6 MG ONCE PER CHEMOTHERAPY CYCLE
     Route: 058

REACTIONS (2)
  - Myelosuppression [Unknown]
  - Leukocytosis [Unknown]

NARRATIVE: CASE EVENT DATE: 20241007
